FAERS Safety Report 9163620 (Version 2)
Quarter: 2013Q1

REPORT INFORMATION
  Report Type: Spontaneous
  Country: GB (occurrence: GB)
  Receive Date: 20130314
  Receipt Date: 20130329
  Transmission Date: 20140127
  Serious: Yes (Disabling)
  Sender: FDA-Public Use
  Company Number: GB-ABBOTT-13P-167-1060877-00

PATIENT
  Sex: Male

DRUGS (7)
  1. HUMIRA [Suspect]
     Indication: CROHN^S DISEASE
     Route: 058
     Dates: start: 2007, end: 2008
  2. HUMIRA [Suspect]
     Route: 058
     Dates: start: 201210, end: 201211
  3. HUMIRA [Suspect]
     Route: 058
  4. AZATHIOPRINE [Concomitant]
     Indication: CROHN^S DISEASE
     Route: 048
     Dates: start: 2007
  5. BUDESONIDE [Concomitant]
     Indication: CROHN^S DISEASE
     Route: 048
  6. PENTASA [Concomitant]
     Indication: CROHN^S DISEASE
     Route: 048
  7. FERINJECT [Concomitant]
     Indication: IRON DEFICIENCY
     Route: 042

REACTIONS (1)
  - Arthralgia [Not Recovered/Not Resolved]
